FAERS Safety Report 10425453 (Version 1)
Quarter: 2014Q3

REPORT INFORMATION
  Report Type: Spontaneous
  Country: US (occurrence: None)
  Receive Date: 20140725
  Receipt Date: 20140725
  Transmission Date: 20150326
  Serious: No
  Sender: FDA-Public Use
  Company Number: AP356-00706-SPO-US

PATIENT
  Age: 52 Year
  Sex: Female
  Weight: 81.6 kg

DRUGS (5)
  1. SYNTHROID [Concomitant]
     Active Substance: LEVOTHYROXINE SODIUM
  2. WELLBUTRIN (BUPROPION) [Concomitant]
  3. BELVIQ [Suspect]
     Active Substance: LORCASERIN HYDROCHLORIDE
     Indication: WEIGHT DECREASED
     Route: 048
     Dates: start: 201403, end: 201403
  4. VITAMIN B-12 (CYANOCOBALAMIN) [Concomitant]
  5. LUNESTA [Concomitant]
     Active Substance: ESZOPICLONE

REACTIONS (2)
  - Fatigue [None]
  - Agitation [None]

NARRATIVE: CASE EVENT DATE: 201403
